FAERS Safety Report 25682527 (Version 2)
Quarter: 2025Q3

REPORT INFORMATION
  Report Type: Spontaneous
  Country: US (occurrence: US)
  Receive Date: 20250814
  Receipt Date: 20250903
  Transmission Date: 20251020
  Serious: Yes (Hospitalization, Other)
  Sender: TEVA
  Company Number: US-TEVA-VS-3359751

PATIENT
  Age: 39 Year
  Sex: Male

DRUGS (5)
  1. CIPROFLOXACIN [Suspect]
     Active Substance: CIPROFLOXACIN
     Indication: Chronic rhinosinusitis with nasal polyps
     Route: 048
     Dates: start: 2024
  2. OMALIZUMAB [Suspect]
     Active Substance: OMALIZUMAB
     Indication: Chronic rhinosinusitis with nasal polyps
     Route: 065
  3. DUPILUMAB [Concomitant]
     Active Substance: DUPILUMAB
     Indication: Chronic rhinosinusitis with nasal polyps
     Route: 065
  4. ASPIRIN [Suspect]
     Active Substance: ASPIRIN
     Indication: Product used for unknown indication
     Route: 065
  5. AMIKACIN SULFATE [Concomitant]
     Active Substance: AMIKACIN SULFATE
     Indication: Chronic rhinosinusitis with nasal polyps
     Route: 045

REACTIONS (2)
  - NSAID exacerbated respiratory disease [Unknown]
  - Drug ineffective [Unknown]
